FAERS Safety Report 25919527 (Version 2)
Quarter: 2025Q4

REPORT INFORMATION
  Report Type: Spontaneous
  Country: JP (occurrence: JP)
  Receive Date: 20251014
  Receipt Date: 20251017
  Transmission Date: 20260118
  Serious: Yes (Hospitalization, Other)
  Sender: MERCK SHARP & DOHME LLC
  Company Number: JP-009507513-2337680

PATIENT
  Age: 74 Year
  Sex: Male

DRUGS (3)
  1. PEMBROLIZUMAB [Suspect]
     Active Substance: PEMBROLIZUMAB
     Indication: Cholangiocarcinoma
     Route: 065
  2. ABATACEPT [Suspect]
     Active Substance: ABATACEPT
  3. PLATINUM [Suspect]
     Active Substance: PLATINUM

REACTIONS (13)
  - Atrioventricular block complete [Unknown]
  - Atrioventricular block complete [Unknown]
  - Myocarditis [Recovering/Resolving]
  - Immune-mediated hepatic disorder [Unknown]
  - Immune-mediated hyperthyroidism [Unknown]
  - Immune-mediated hypophysitis [Unknown]
  - Immune-mediated hypothyroidism [Recovering/Resolving]
  - Immune-mediated pericarditis [Unknown]
  - Pneumonia [Unknown]
  - Adrenal insufficiency [Unknown]
  - Electrocardiogram abnormal [Unknown]
  - Febrile neutropenia [Unknown]
  - Immune-mediated enterocolitis [Unknown]
